FAERS Safety Report 6890258-1 (Version None)
Quarter: 2010Q3

REPORT INFORMATION
  Report Type: 
  Country: None (occurrence: None)
  Receive Date: 20100730
  Receipt Date: 20080912
  Transmission Date: 20110219
  Serious: No
  Sender: FDA-Public Use
  Company Number: US-PFIZER INC-2008077090

PATIENT
  Age: 50 Year
  Sex: Male
  Weight: 90.72 kg

DRUGS (4)
  1. LIPITOR [Suspect]
  2. GABAPENTIN [Concomitant]
  3. ETODOLAC [Concomitant]
  4. FENTANYL [Concomitant]

REACTIONS (1)
  - VITAMIN D DECREASED [None]
